FAERS Safety Report 6818650-1 (Version None)
Quarter: 2010Q3

REPORT INFORMATION
  Report Type: 
  Country: None (occurrence: None)
  Receive Date: 20100706
  Receipt Date: 20090213
  Transmission Date: 20110219
  Serious: No
  Sender: FDA-Public Use
  Company Number: US-PFIZER INC-2009171689

PATIENT
  Sex: Female
  Weight: 70.3 kg

DRUGS (2)
  1. ZITHROMAX [Suspect]
     Indication: INFLUENZA LIKE ILLNESS
     Dosage: UNK
     Dates: start: 20090203, end: 20090201
  2. ZITHROMAX [Suspect]
     Indication: PYREXIA

REACTIONS (1)
  - HYPOAESTHESIA [None]
